FAERS Safety Report 7268410-5 (Version None)
Quarter: 2011Q1

REPORT INFORMATION
  Report Type: 
  Country: None (occurrence: None)
  Receive Date: 20110121
  Receipt Date: 20110113
  Transmission Date: 20110831
  Serious: Yes (Other)
  Sender: FDA-Public Use
  Company Number: 2011MA000383

PATIENT
  Age: 37 Year
  Sex: Male

DRUGS (3)
  1. CON MEDS [Concomitant]
  2. PREV MEDS [Concomitant]
  3. AMLODIPINE BESYLATE [Suspect]
     Indication: HYPERTENSION
     Dosage: 10 MG;PO
     Route: 048
     Dates: start: 20100601, end: 20101101

REACTIONS (1)
  - HEPATITIS [None]
